FAERS Safety Report 24056733 (Version 1)
Quarter: 2024Q3

REPORT INFORMATION
  Report Type: Report from Study
  Country: CA (occurrence: CA)
  Receive Date: 20240705
  Receipt Date: 20240705
  Transmission Date: 20241017
  Serious: Yes (Hospitalization)
  Sender: ABBVIE
  Company Number: CA-ABBVIE-5825906

PATIENT
  Age: 75 Year
  Sex: Male

DRUGS (1)
  1. LUPRON [Suspect]
     Active Substance: LEUPROLIDE ACETATE
     Indication: Prostate cancer
     Route: 030
     Dates: start: 20230712, end: 2024

REACTIONS (3)
  - Respiratory tract congestion [Unknown]
  - Nephrolithiasis [Unknown]
  - Cystitis [Unknown]

NARRATIVE: CASE EVENT DATE: 20240701
